FAERS Safety Report 10986321 (Version 1)
Quarter: 2015Q2

REPORT INFORMATION
  Report Type: Spontaneous
  Country: US (occurrence: None)
  Receive Date: 20150403
  Receipt Date: 20150403
  Transmission Date: 20150821
  Serious: Yes (Hospitalization, Disabling, Other)
  Sender: FDA-Public Use
  Company Number: None

PATIENT
  Age: 7 Year
  Sex: Male
  Weight: 19.96 kg

DRUGS (7)
  1. RISPERDAL [Suspect]
     Active Substance: RISPERIDONE
     Indication: AUTISM SPECTRUM DISORDER
     Route: 048
     Dates: start: 20150323, end: 20150331
  2. CITALOPRAM [Concomitant]
     Active Substance: CITALOPRAM HYDROBROMIDE
  3. CLONIDINE. [Concomitant]
     Active Substance: CLONIDINE
  4. RISPERDAL [Suspect]
     Active Substance: RISPERIDONE
     Indication: AUTISM SPECTRUM DISORDER
     Dosage: TABLET
     Route: 048
     Dates: start: 20150323, end: 20150331
  5. METHYLPHENEDATE 10MG [Concomitant]
  6. METHYLPHENADATE (LA) 30MG [Concomitant]
  7. MIRALAX [Concomitant]
     Active Substance: POLYETHYLENE GLYCOL 3350

REACTIONS (12)
  - Glassy eyes [None]
  - Screaming [None]
  - Emotional disorder [None]
  - Product substitution issue [None]
  - Nausea [None]
  - Oromandibular dystonia [None]
  - Speech disorder [None]
  - Mood altered [None]
  - Vomiting [None]
  - Tremor [None]
  - Pain in jaw [None]
  - Pain [None]

NARRATIVE: CASE EVENT DATE: 20150331
